FAERS Safety Report 4319928-6 (Version None)
Quarter: 2004Q1

REPORT INFORMATION
  Report Type: 
  Country: None (occurrence: None)
  Receive Date: 20040316
  Receipt Date: 20040304
  Transmission Date: 20041129
  Serious: Yes (Other)
  Sender: FDA-Public Use
  Company Number: 2004202470CA

PATIENT
  Age: 50 Year
  Sex: Female

DRUGS (2)
  1. BEXTRA [Suspect]
     Indication: ARTHRALGIA
     Dosage: 20 MG, QD, ORAL
     Route: 048
     Dates: start: 20040210, end: 20040220
  2. ALESSE [Concomitant]

REACTIONS (5)
  - DYSPNOEA [None]
  - MYALGIA [None]
  - PRURITUS [None]
  - SERUM SICKNESS [None]
  - URTICARIA [None]
